FAERS Safety Report 6024081-7 (Version None)
Quarter: 2008Q4

REPORT INFORMATION
  Report Type: 
  Country: None (occurrence: None)
  Receive Date: 20081224
  Receipt Date: 20081217
  Transmission Date: 20090506
  Serious: No
  Sender: FDA-Public Use
  Company Number: 2008-188697-NL

PATIENT
  Age: 54 Year
  Sex: Male

DRUGS (2)
  1. VECURONIUM BROMIDE [Suspect]
     Indication: INDUCTION OF ANAESTHESIA
     Dates: start: 20080101, end: 20080101
  2. PROPOFOL [Suspect]
     Indication: INDUCTION OF ANAESTHESIA
     Dates: start: 20080101, end: 20080101

REACTIONS (4)
  - ENDOTRACHEAL INTUBATION COMPLICATION [None]
  - HAEMATOMA EVACUATION [None]
  - HAEMOSTASIS [None]
  - MECHANICAL VENTILATION COMPLICATION [None]
